FAERS Safety Report 9501460 (Version 2)
Quarter: 2013Q4

REPORT INFORMATION
  Report Type: Spontaneous
  Country: FR (occurrence: FR)
  Receive Date: 20130905
  Receipt Date: 20131010
  Transmission Date: 20140711
  Serious: Yes (Life-Threatening, Hospitalization)
  Sender: FDA-Public Use
  Company Number: FR-GLAXOSMITHKLINE-B0918542A

PATIENT
  Age: 45 Year
  Sex: Female

DRUGS (7)
  1. AZANTAC [Suspect]
     Indication: PREMEDICATION
     Route: 042
     Dates: start: 20130806, end: 20130806
  2. SOLUMEDROL [Suspect]
     Indication: PREMEDICATION
     Route: 042
     Dates: start: 20130806, end: 20130806
  3. POLARAMINE [Suspect]
     Indication: PREMEDICATION
     Dosage: 5MG SINGLE DOSE
     Route: 042
     Dates: start: 20130806, end: 20130806
  4. EMEND [Suspect]
     Indication: PREMEDICATION
     Dosage: 125MG SINGLE DOSE
     Route: 048
     Dates: start: 20130806, end: 20130806
  5. TAXOL [Concomitant]
     Indication: CHEMOTHERAPY
     Route: 042
  6. CARBOPLATINE [Concomitant]
     Indication: CHEMOTHERAPY
     Route: 042
  7. ZOPHREN [Concomitant]
     Route: 042

REACTIONS (6)
  - Laryngeal oedema [Recovered/Resolved]
  - Generalised erythema [Recovered/Resolved]
  - Laryngeal discomfort [Recovered/Resolved]
  - Pruritus generalised [Recovered/Resolved]
  - Feeling hot [Recovered/Resolved]
  - Painful respiration [Recovered/Resolved]
